FAERS Safety Report 5515583-8 (Version None)
Quarter: 2007Q4

REPORT INFORMATION
  Report Type: 
  Country: None (occurrence: None)
  Receive Date: 20071113
  Receipt Date: 20070614
  Transmission Date: 20080405
  Serious: No
  Sender: FDA-Public Use
  Company Number: A0656629A

PATIENT
  Age: 70 Year
  Sex: Male

DRUGS (2)
  1. COREG [Suspect]
     Indication: HYPERTENSION
     Dosage: 12.5MG TWICE PER DAY
     Route: 048
  2. COUMADIN [Concomitant]

REACTIONS (4)
  - ABASIA [None]
  - DRY MOUTH [None]
  - DYSPNOEA [None]
  - HEART RATE DECREASED [None]
